FAERS Safety Report 9261272 (Version 1)
Quarter: 2013Q2

REPORT INFORMATION
  Report Type: Spontaneous
  Country: US (occurrence: US)
  Receive Date: 20130429
  Receipt Date: 20130429
  Transmission Date: 20140414
  Serious: No
  Sender: FDA-Public Use
  Company Number: US-AMGEN-USASP2012057484

PATIENT
  Age: 38 Year
  Sex: Female
  Weight: 51 kg

DRUGS (6)
  1. SENSIPAR [Suspect]
     Indication: HYPERPARATHYROIDISM SECONDARY
     Dosage: 30 MG, QD
     Route: 048
  2. CARVEDILOL [Concomitant]
     Dosage: 12.5 UNK, TID
     Route: 048
  3. BENAZEPRIL [Concomitant]
     Dosage: 20 MG, BID
  4. RENAGEL                            /01459901/ [Concomitant]
     Dosage: 800 MG, TID
  5. CLONIDINE [Concomitant]
     Dosage: 0.2 MG, BID
  6. WARFARIN [Concomitant]
     Dosage: 5 MG, QD

REACTIONS (3)
  - Abdominal distension [Not Recovered/Not Resolved]
  - Discomfort [Not Recovered/Not Resolved]
  - Abdominal pain upper [Not Recovered/Not Resolved]
